FAERS Safety Report 19745030 (Version 1)
Quarter: 2021Q3

REPORT INFORMATION
  Report Type: Spontaneous
  Country: CA (occurrence: CA)
  Receive Date: 20210825
  Receipt Date: 20210825
  Transmission Date: 20211014
  Serious: Yes (Other)
  Sender: FDA-Public Use
  Company Number: CA-AMERICAN REGENT INC-2021001750

PATIENT
  Age: 30 Year
  Sex: Female

DRUGS (1)
  1. VENOFER [Suspect]
     Active Substance: IRON SUCROSE
     Indication: PRODUCT USED FOR UNKNOWN INDICATION
     Dosage: 300 MILLIGRAM, SINGLE
     Route: 065
     Dates: start: 20210302, end: 20210302

REACTIONS (9)
  - Hypoaesthesia [Unknown]
  - Rash erythematous [Unknown]
  - Nausea [Unknown]
  - Vomiting [Unknown]
  - Peripheral swelling [Unknown]
  - Tremor [Unknown]
  - Pruritus [Unknown]
  - Hyperhidrosis [Unknown]
  - Maternal exposure during pregnancy [Unknown]

NARRATIVE: CASE EVENT DATE: 20210302
